FAERS Safety Report 5475339-1 (Version None)
Quarter: 2007Q4

REPORT INFORMATION
  Report Type: 
  Country: None (occurrence: None)
  Receive Date: 20071001
  Receipt Date: 20061208
  Transmission Date: 20080405
  Serious: Yes (Death, Other)
  Sender: FDA-Public Use
  Company Number: 2007MP000505

PATIENT

DRUGS (1)
  1. GLIADEL [Suspect]
     Indication: GLIOBLASTOMA MULTIFORME
     Dosage: X1; ICER

REACTIONS (7)
  - CONVULSION [None]
  - DISEASE PROGRESSION [None]
  - NECROSIS [None]
  - PULMONARY EMBOLISM [None]
  - RADIATION INJURY [None]
  - RECURRENT CANCER [None]
  - TUMOUR NECROSIS [None]
